FAERS Safety Report 7679055-7 (Version None)
Quarter: 2011Q3

REPORT INFORMATION
  Report Type: 
  Country: None (occurrence: None)
  Receive Date: 20110812
  Receipt Date: 20110802
  Transmission Date: 20111222
  Serious: Yes (Hospitalization)
  Sender: FDA-Public Use
  Company Number: US-AMGEN-USASP2011039330

PATIENT
  Age: 56 Year
  Sex: Female

DRUGS (2)
  1. ENBREL [Suspect]
     Indication: RHEUMATOID ARTHRITIS
     Dosage: 50 MG, QWK
     Dates: start: 20110325
  2. TREXALL [Concomitant]
     Dosage: 1 MG, QWK
     Dates: start: 20110101

REACTIONS (11)
  - JOINT SWELLING [None]
  - NECK PAIN [None]
  - SWELLING [None]
  - LIP SWELLING [None]
  - PAIN IN EXTREMITY [None]
  - LIP PAIN [None]
  - HERPES SIMPLEX [None]
  - ABASIA [None]
  - MUSCULOSKELETAL PAIN [None]
  - INJECTION SITE PAIN [None]
  - OEDEMA PERIPHERAL [None]
